FAERS Safety Report 8122645-8 (Version None)
Quarter: 2012Q1

REPORT INFORMATION
  Report Type: 
  Country: None (occurrence: None)
  Receive Date: 20120208
  Receipt Date: 20120131
  Transmission Date: 20120608
  Serious: Yes (Death, Hospitalization, Other)
  Sender: FDA-Public Use
  Company Number: NL-BIOGENIDEC-2011BI002033

PATIENT
  Age: 50 Year
  Sex: Female
  Weight: 46 kg

DRUGS (11)
  1. TYSABRI [Suspect]
     Indication: RELAPSING-REMITTING MULTIPLE SCLEROSIS
     Route: 042
     Dates: start: 20080725, end: 20101217
  2. BACLOFEN [Concomitant]
     Dates: start: 20100101
  3. BACLOFEN [Concomitant]
     Dates: start: 20110101
  4. ZOPICLON [Concomitant]
  5. ZOLPIDEM [Concomitant]
  6. ACETAMINOPHEN [Concomitant]
  7. BETAHISTINE [Concomitant]
  8. PAROXETINE HCL [Concomitant]
  9. DIAZEPAM [Concomitant]
  10. NAPROXEN [Concomitant]
  11. OMEPRAZOLE [Concomitant]

REACTIONS (3)
  - UROSEPSIS [None]
  - PROGRESSIVE MULTIFOCAL LEUKOENCEPHALOPATHY [None]
  - IMMUNE RECONSTITUTION SYNDROME [None]
